FAERS Safety Report 4818431-4 (Version None)
Quarter: 2005Q4

REPORT INFORMATION
  Report Type: 
  Country: None (occurrence: None)
  Receive Date: 20051031
  Receipt Date: 20051020
  Transmission Date: 20060501
  Serious: Yes (Death, Other)
  Sender: FDA-Public Use
  Company Number: 2005145013

PATIENT
  Age: 61 Year
  Sex: Male
  Weight: 77.1115 kg

DRUGS (5)
  1. LIPITOR [Suspect]
     Indication: BLOOD CHOLESTEROL INCREASED
     Dosage: 20 MG (20 MG, 1 IN 1 D)
  2. CELEBREX [Suspect]
     Indication: ARTHRALGIA
  3. CELEBREX [Suspect]
     Indication: ARTHRITIS
  4. VIAGRA [Suspect]
     Indication: ERECTILE DYSFUNCTION
     Dosage: 100 MG, AS NECESSARY
  5. BEXTRA [Suspect]
     Indication: ILL-DEFINED DISORDER

REACTIONS (13)
  - ARTHRITIS [None]
  - BLOOD CHOLESTEROL INCREASED [None]
  - CYANOPSIA [None]
  - DIFFICULTY IN WALKING [None]
  - DRUG INEFFECTIVE [None]
  - DRY EYE [None]
  - DYSURIA [None]
  - ERECTILE DYSFUNCTION [None]
  - EYE IRRITATION [None]
  - FEELING ABNORMAL [None]
  - OCULAR HYPERAEMIA [None]
  - PROSTATE EXAMINATION ABNORMAL [None]
  - VISION BLURRED [None]
